FAERS Safety Report 14932385 (Version 3)
Quarter: 2021Q1

REPORT INFORMATION
  Report Type: Report from Study
  Country: US (occurrence: US)
  Receive Date: 20180524
  Receipt Date: 20210219
  Transmission Date: 20210419
  Serious: Yes (Death, Other)
  Sender: FDA-Public Use
  Company Number: US-ACADIA PHARMACEUTICALS INC.-ACA-2018-007527

PATIENT
  Age: 88 Year
  Sex: Male

DRUGS (17)
  1. NUPLAZID [Suspect]
     Active Substance: PIMAVANSERIN TARTRATE
     Indication: PARKINSON^S DISEASE
  2. METHENAMINE HIPPURATE. [Concomitant]
     Active Substance: METHENAMINE HIPPURATE
     Dosage: 1 GRAM
  3. NUPLAZID [Suspect]
     Active Substance: PIMAVANSERIN TARTRATE
     Indication: HALLUCINATION
     Dosage: 34 MG, QD
     Route: 065
     Dates: start: 20180201
  4. CARBIDOPA/LEVODOPA [Concomitant]
     Active Substance: CARBIDOPA\LEVODOPA
     Dosage: 25/100 (UNKNOWN UNITS)
  5. CLONAZEPAM. [Concomitant]
     Active Substance: CLONAZEPAM
     Dosage: 0.5 (UNKNOWN UNITS)
  6. NUPLAZID [Suspect]
     Active Substance: PIMAVANSERIN TARTRATE
     Indication: DELUSION
  7. ASPIRIN [ACETYLSALICYLIC ACID] [Concomitant]
     Active Substance: ASPIRIN
     Dosage: 81 MILLIGRAM, QD
  8. ALPRAZOLAM. [Concomitant]
     Active Substance: ALPRAZOLAM
     Dosage: 1 MILLIGRAM
  9. RIVASTIGMINE. [Concomitant]
     Active Substance: RIVASTIGMINE
     Dosage: 13.3 (UNKNOWN UNITS)
  10. XANAX [Concomitant]
     Active Substance: ALPRAZOLAM
     Dosage: 0.25 MG BEDTIME
  11. METOPROLOL. [Concomitant]
     Active Substance: METOPROLOL
     Dosage: 50 MILLIGRAM
  12. TAMSULOSINE [TAMSULOSIN] [Concomitant]
     Active Substance: TAMSULOSIN
     Dosage: 0.4 MILLIGRAM
  13. PLAVIX [Concomitant]
     Active Substance: CLOPIDOGREL BISULFATE
     Dosage: 75 MILLIGRAM, QD
  14. NUPLAZID [Suspect]
     Active Substance: PIMAVANSERIN TARTRATE
     Indication: PARKINSON^S DISEASE PSYCHOSIS
  15. SINEMET [Concomitant]
     Active Substance: CARBIDOPA\LEVODOPA
     Dosage: 25/100 MG 1 TAB 3 TIMES PER DAY
  16. NUPLAZID [Suspect]
     Active Substance: PIMAVANSERIN TARTRATE
     Indication: HALLUCINATION
     Dosage: 34 MILLIGRAM, QD
     Route: 048
     Dates: start: 20200408, end: 20210109
  17. SERTRALINE [Concomitant]
     Active Substance: SERTRALINE HYDROCHLORIDE
     Dosage: 100 MILLIGRAM, QD

REACTIONS (7)
  - Myocardial infarction [Recovered/Resolved]
  - Anger [Unknown]
  - Hallucination [Unknown]
  - Confusional state [Unknown]
  - Condition aggravated [Unknown]
  - Therapeutic response unexpected [Unknown]
  - Agitation [Unknown]

NARRATIVE: CASE EVENT DATE: 20180325
